FAERS Safety Report 4330955-5 (Version None)
Quarter: 2004Q1

REPORT INFORMATION
  Report Type: 
  Country: None (occurrence: None)
  Receive Date: 20040329
  Receipt Date: 20040315
  Transmission Date: 20041129
  Serious: No
  Sender: FDA-Public Use
  Company Number: RENA-10948

PATIENT
  Age: 52 Year
  Sex: Male

DRUGS (7)
  1. RENAGEL [Suspect]
     Indication: HYPERPHOSPHATAEMIA
     Dates: start: 20010301
  2. EPOGEN [Concomitant]
  3. BETA-BLOCKERS [Concomitant]
  4. ANGIOTENSIN-CONVERTING ENZYME INHIBITORS [Concomitant]
  5. MULTIVITAMIN [Concomitant]
  6. CALCITRIOL [Concomitant]
  7. PARICALCITOL [Concomitant]

REACTIONS (8)
  - ANGIOGRAM ABNORMAL [None]
  - ANGIOTENSIN I DECREASED [None]
  - ATHEROSCLEROSIS [None]
  - HYPERTENSIVE NEPHROPATHY [None]
  - NEPHROSCLEROSIS [None]
  - RENAL CYST [None]
  - VITAMIN D DECREASED [None]
  - VITAMIN D INCREASED [None]
